FAERS Safety Report 10023755 (Version 3)
Quarter: 2014Q2

REPORT INFORMATION
  Report Type: Spontaneous
  Country: US (occurrence: US)
  Receive Date: 20140320
  Receipt Date: 20140423
  Transmission Date: 20141212
  Serious: Yes (Other)
  Sender: FDA-Public Use
  Company Number: US-BAYER-2014-040845

PATIENT
  Age: 19 Year
  Sex: Female

DRUGS (7)
  1. YASMIN [Suspect]
     Dosage: UNK
     Dates: end: 20070613
  2. YAZ [Suspect]
  3. OCELLA [Suspect]
  4. GIANVI [Suspect]
  5. IBUPROFEN [Concomitant]
     Dosage: 600 MG, UNK
     Route: 048
  6. BALZIVA [Concomitant]
  7. BACTRIM [Concomitant]
     Indication: ACNE
     Dosage: UNK
     Dates: end: 20070424

REACTIONS (5)
  - Pulmonary embolism [None]
  - Emotional distress [None]
  - Pain [None]
  - Injury [None]
  - Pain [None]
